FAERS Safety Report 8576811-8 (Version None)
Quarter: 2012Q3

REPORT INFORMATION
  Report Type: 
  Country: None (occurrence: None)
  Receive Date: 20120807
  Receipt Date: 20120803
  Transmission Date: 20120928
  Serious: Yes (Death, Life-Threatening)
  Sender: FDA-Public Use
  Company Number: US-AMGEN-US323317

PATIENT
  Age: 59 Year
  Sex: Female

DRUGS (9)
  1. ESOMEPRAZOLE MAGNESIUM [Concomitant]
     Dosage: UNK UNK, UNK
     Route: 065
  2. HYDROCODONE BITARTRATE [Concomitant]
     Dosage: UNK UNK, UNK
     Route: 065
  3. CINACALCET HYDROCHLORIDE [Suspect]
     Indication: HYPERPARATHYROIDISM SECONDARY
     Dosage: UNK UNK, QD
     Route: 048
     Dates: start: 20070223, end: 20081124
  4. FLUTICASONE PROPIONATE/SALMETEROL [Concomitant]
     Dosage: UNK UNK, UNK
     Route: 065
  5. ALPRAZOLAM [Concomitant]
     Dosage: UNK UNK, UNK
     Route: 065
  6. ALBUTEROL SULFATE [Concomitant]
     Dosage: UNK UNK, UNK
     Route: 065
  7. TIOTROPIUM BROMIDE [Concomitant]
     Dosage: UNK UNK, UNK
     Route: 065
  8. FENTANYL [Concomitant]
     Dosage: UNK UNK, UNK
     Route: 062
  9. DULOXETIME HYDROCHLORIDE [Concomitant]
     Dosage: UNK UNK, UNK
     Route: 065

REACTIONS (2)
  - SEPSIS [None]
  - INTESTINAL ISCHAEMIA [None]
